FAERS Safety Report 6418521-9 (Version None)
Quarter: 2009Q4

REPORT INFORMATION
  Report Type: 
  Country: None (occurrence: None)
  Receive Date: 20091028
  Receipt Date: 20091019
  Transmission Date: 20100525
  Serious: Yes (Hospitalization)
  Sender: FDA-Public Use
  Company Number: US-ASTRAZENECA-2009SE21571

PATIENT
  Age: 72 Year
  Sex: Male

DRUGS (5)
  1. CRESTOR [Suspect]
     Route: 048
     Dates: start: 20080301
  2. METFORMIN HCL [Concomitant]
  3. ALDACTONE [Concomitant]
  4. AVANDIA [Concomitant]
  5. TRILIPIX [Concomitant]

REACTIONS (4)
  - ABDOMINAL DISTENSION [None]
  - BLOOD CREATINE PHOSPHOKINASE INCREASED [None]
  - JAUNDICE [None]
  - MUSCULAR WEAKNESS [None]
